FAERS Safety Report 7817846-X (Version None)
Quarter: 2011Q4

REPORT INFORMATION
  Report Type: 
  Country: None (occurrence: None)
  Receive Date: 20111017
  Receipt Date: 20111010
  Transmission Date: 20120403
  Serious: Yes (Hospitalization, Other)
  Sender: FDA-Public Use
  Company Number: AU-PFIZER INC-2011242504

PATIENT
  Age: 22 Year
  Sex: Female
  Weight: 50 kg

DRUGS (2)
  1. PROPRANOLOL HCL [Suspect]
     Indication: TREMOR
     Dosage: LARGE BUT UNSPECIFIED QUANITY
  2. METOCLOPRAMIDE HYDROCHLORIDE [Suspect]
     Dosage: SMALLER QUANITY

REACTIONS (6)
  - VENTRICULAR TACHYCARDIA [None]
  - OVERDOSE [None]
  - CIRCULATORY COLLAPSE [None]
  - PULSELESS ELECTRICAL ACTIVITY [None]
  - CONVULSION [None]
  - VENTRICULAR FIBRILLATION [None]
